FAERS Safety Report 10208427 (Version 1)
Quarter: 2014Q2

REPORT INFORMATION
  Report Type: Report from Study
  Country: TR (occurrence: TR)
  Receive Date: 20140530
  Receipt Date: 20140530
  Transmission Date: 20141212
  Serious: Yes (Disabling, Other)
  Sender: FDA-Public Use
  Company Number: TR-BRISTOL-MYERS SQUIBB COMPANY-20824843

PATIENT
  Age: 82 Year
  Sex: Male

DRUGS (7)
  1. COUMADINE [Suspect]
  2. LIPITOR [Suspect]
     Dosage: FILM COATED TABS
  3. CARDURA [Suspect]
  4. BELOC [Suspect]
  5. FUROSEMIDE [Suspect]
  6. DIGOXIN [Suspect]
  7. MONOKET [Suspect]

REACTIONS (3)
  - Chest pain [Not Recovered/Not Resolved]
  - Intestinal haemorrhage [Unknown]
  - Gastric haemorrhage [Unknown]
